FAERS Safety Report 6702606-3 (Version None)
Quarter: 2010Q2

REPORT INFORMATION
  Report Type: 
  Country: None (occurrence: None)
  Receive Date: 20100429
  Receipt Date: 20100420
  Transmission Date: 20101027
  Serious: Yes (Hospitalization)
  Sender: FDA-Public Use
  Company Number: US-B.I. PHARMACEUTICALS,INC./RIDGEFIELD-2010-BP-02208BP

PATIENT
  Sex: Male
  Weight: 95 kg

DRUGS (29)
  1. MIRAPEX [Suspect]
     Indication: RESTLESS LEGS SYNDROME
     Route: 048
     Dates: end: 20091001
  2. LIDODERM [Concomitant]
     Indication: PAIN
  3. TRAMADOL HYDROCHLORIDE AND ACETAMINOPHEN [Concomitant]
     Indication: PAIN
  4. LISINOPRIL AND HYDROCHLOROTHIAZIDE [Concomitant]
     Indication: HYPERTENSION
  5. VYTORIN [Concomitant]
     Indication: BLOOD CHOLESTEROL
  6. VYTORIN [Concomitant]
     Indication: HYPERTENSION
  7. XYREM [Concomitant]
     Dosage: 18 ML
  8. ALTACE [Concomitant]
  9. ALTACE [Concomitant]
     Dosage: 5 MG
  10. REQUIP [Concomitant]
     Indication: RESTLESS LEGS SYNDROME
  11. KLONOPIN [Concomitant]
  12. ETODOLAR [Concomitant]
  13. PREVACID [Concomitant]
  14. METFORMIN HCL [Concomitant]
     Indication: DIABETES MELLITUS
     Dosage: 500 MG
  15. PROVIGIL XR2 [Concomitant]
     Indication: NARCOLEPSY
     Dosage: 400 MG
  16. AMBIEN [Concomitant]
  17. RESTORIL [Concomitant]
     Indication: INSOMNIA
  18. NAPROSYN [Concomitant]
     Indication: PAIN
  19. NEURONTIN [Concomitant]
  20. PROVENTIL GENTLEHALER [Concomitant]
  21. SKELAXIN [Concomitant]
     Dosage: 2400 MG
  22. SOMA [Concomitant]
     Indication: PAIN
     Route: 048
  23. ZANAFLEX [Concomitant]
     Route: 048
  24. ZANAFLEX [Concomitant]
     Route: 048
  25. ZOCOR [Concomitant]
     Dosage: 20 MG
     Route: 048
  26. CYMBALTA [Concomitant]
  27. CIALIS [Concomitant]
  28. PRILOSEC [Concomitant]
     Dosage: 40 MG
  29. LITHIUM CARBONATE [Concomitant]

REACTIONS (13)
  - ACUTE PSYCHOSIS [None]
  - BIPOLAR II DISORDER [None]
  - BLOOD GLUCOSE INCREASED [None]
  - COMPULSIVE SHOPPING [None]
  - DEPRESSION [None]
  - EMOTIONAL DISTRESS [None]
  - HYPERSEXUALITY [None]
  - IMPULSE-CONTROL DISORDER [None]
  - LIBIDO INCREASED [None]
  - OBSESSIVE-COMPULSIVE DISORDER [None]
  - PAIN [None]
  - PATHOLOGICAL GAMBLING [None]
  - SUICIDAL IDEATION [None]
